APPROVED DRUG PRODUCT: ISOFLURANE
Active Ingredient: ISOFLURANE
Strength: 99.9%
Dosage Form/Route: LIQUID;INHALATION
Application: A075225 | Product #001 | TE Code: AN
Applicant: HALOCARBON PRODUCTS CORP
Approved: Oct 20, 1999 | RLD: No | RS: No | Type: RX